FAERS Safety Report 7759110-3 (Version None)
Quarter: 2011Q3

REPORT INFORMATION
  Report Type: 
  Country: None (occurrence: None)
  Receive Date: 20110919
  Receipt Date: 20110913
  Transmission Date: 20111222
  Serious: Yes (Death, Life-Threatening, Hospitalization)
  Sender: FDA-Public Use
  Company Number: PHHO2010US12110

PATIENT
  Sex: Male
  Weight: 123.36 kg

DRUGS (40)
  1. BLINDED ALISKIREN [Suspect]
     Dosage: CODE NOT BROKEN
     Route: 048
     Dates: start: 20100518, end: 20100723
  2. BLINDED ALISKIREN [Suspect]
     Dosage: CODE NOT BROKEN
     Route: 048
     Dates: start: 20100729
  3. CARVEDILOL [Concomitant]
  4. TORSEMIDE [Concomitant]
  5. VITAMIN D [Concomitant]
  6. NIASPAN [Concomitant]
  7. MUCOMYST [Concomitant]
  8. DEMADEX [Concomitant]
  9. NOVOLIN R [Concomitant]
  10. HYDRALAZINE HCL [Concomitant]
  11. BLINDED NO TREATMENT RECEIVED [Suspect]
     Dosage: CODE NOT BROKEN
     Route: 048
     Dates: start: 20100518, end: 20100723
  12. BLINDED NO TREATMENT RECEIVED [Suspect]
     Dosage: CODE NOT BROKEN
     Route: 048
     Dates: start: 20100729
  13. ACETAMINOPHEN [Concomitant]
  14. ONDANSETRON HCL [Concomitant]
  15. ASPIRIN [Concomitant]
  16. ENALAPRIL MALEATE [Suspect]
     Dosage: CODE NOT BROKEN
     Route: 048
     Dates: start: 20100729
  17. AMIODARONE HCL [Concomitant]
  18. XYLOCAINE [Concomitant]
  19. SODIUM CHLORIDE [Concomitant]
  20. BLINDED NO TREATMENT RECEIVED [Suspect]
     Dosage: NO TREATMENT
     Dates: start: 20100724, end: 20100728
  21. WARFARIN SODIUM [Concomitant]
  22. ASPIRIN [Concomitant]
  23. ENALAPRIL MALEATE [Suspect]
     Dosage: CODE NOT BROKEN
     Route: 048
     Dates: start: 20100518, end: 20100723
  24. ALISKIREN [Suspect]
     Indication: CARDIAC FAILURE
  25. CRESTOR [Concomitant]
  26. HEPARIN [Concomitant]
  27. DIPHENHYDRAMINE HCL [Concomitant]
  28. METOLAZONE [Concomitant]
  29. COUMADIN [Concomitant]
  30. CAPTOPRIL [Concomitant]
  31. ISOSORBIDE DINITRATE [Concomitant]
  32. ENALAPRIL MALEATE [Suspect]
     Dosage: NO TREATMENT
     Dates: start: 20100724, end: 20100728
  33. ENALAPRIL MALEATE [Suspect]
     Indication: CARDIAC FAILURE
  34. KLOR-CON [Concomitant]
  35. SPIRONOLACTONE [Concomitant]
  36. FISH OIL [Concomitant]
  37. ZAROXOLYN [Concomitant]
  38. BLINDED ALISKIREN [Suspect]
     Dosage: NO TREATMENT
     Dates: start: 20100724, end: 20100728
  39. LASIX [Concomitant]
  40. VITAMIN K TAB [Concomitant]

REACTIONS (15)
  - BRONCHOSPASM [None]
  - BUNDLE BRANCH BLOCK LEFT [None]
  - BLOOD CREATININE INCREASED [None]
  - ATRIAL FIBRILLATION [None]
  - DYSPNOEA [None]
  - BLOOD POTASSIUM INCREASED [None]
  - CONDITION AGGRAVATED [None]
  - CARDIAC FAILURE [None]
  - CORONARY ARTERY DISEASE [None]
  - EJECTION FRACTION DECREASED [None]
  - ATRIAL FLUTTER [None]
  - CHEST PAIN [None]
  - ACUTE RESPIRATORY FAILURE [None]
  - DISEASE PROGRESSION [None]
  - CONCOMITANT DISEASE PROGRESSION [None]
